FAERS Safety Report 21793690 (Version 1)
Quarter: 2022Q4

REPORT INFORMATION
  Report Type: Spontaneous
  Country: US (occurrence: None)
  Receive Date: 20221228
  Receipt Date: 20221228
  Transmission Date: 20230113
  Serious: Yes (Other)
  Sender: FDA-Public Use
  Company Number: None

PATIENT
  Age: 39 Year
  Sex: Male
  Weight: 78.93 kg

DRUGS (1)
  1. HERBALS\MITRAGYNINE [Suspect]
     Active Substance: HERBALS\MITRAGYNINE
     Route: 048
     Dates: start: 20220524, end: 20221221

REACTIONS (4)
  - Withdrawal syndrome [None]
  - Drug abuse [None]
  - Product contamination [None]
  - Product formulation issue [None]

NARRATIVE: CASE EVENT DATE: 20221223
